FAERS Safety Report 7624256-7 (Version None)
Quarter: 2011Q3

REPORT INFORMATION
  Report Type: 
  Country: None (occurrence: None)
  Receive Date: 20110719
  Receipt Date: 20110719
  Transmission Date: 20111222
  Serious: Yes (Other)
  Sender: FDA-Public Use
  Company Number: None

PATIENT
  Age: 56 Year
  Sex: Female
  Weight: 70.3075 kg

DRUGS (1)
  1. CIPRO [Suspect]
     Indication: URINARY TRACT INFECTION
     Dosage: 500MG BID ORAL
     Route: 048
     Dates: start: 20110511, end: 20110515

REACTIONS (7)
  - DIARRHOEA [None]
  - BACK PAIN [None]
  - MUSCLE SPASMS [None]
  - BEDRIDDEN [None]
  - PAIN IN EXTREMITY [None]
  - CARDIAC FLUTTER [None]
  - EMOTIONAL DISORDER [None]
